FAERS Safety Report 9620343 (Version 3)
Quarter: 2013Q4

REPORT INFORMATION
  Report Type: Report from Study
  Country: FR (occurrence: FR)
  Receive Date: 20131014
  Receipt Date: 20131018
  Transmission Date: 20140711
  Serious: Yes (Other)
  Sender: FDA-Public Use
  Company Number: PHHY2013FR114548

PATIENT
  Age: 75 Year
  Sex: Female

DRUGS (6)
  1. ACLASTA/ZOLEDRONATE [Suspect]
     Indication: OSTEOPOROSIS
     Dosage: UNK
     Route: 042
     Dates: start: 20110228
  2. ARAVA [Concomitant]
     Dosage: UNK
     Dates: start: 2000
  3. CORTANCYL [Concomitant]
     Dosage: UNK
     Dates: start: 2000
  4. TAHOR [Concomitant]
     Dosage: UNK
     Dates: start: 2005
  5. COVERSYL [Concomitant]
     Dosage: UNK
     Dates: start: 2009
  6. ENBREL [Concomitant]
     Dosage: UNK UKN, UNK
     Dates: start: 2012

REACTIONS (2)
  - Fall [Unknown]
  - Pelvic fracture [Unknown]
